FAERS Safety Report 25997481 (Version 1)
Quarter: 2025Q4

REPORT INFORMATION
  Report Type: Report from Study
  Country: MX (occurrence: MX)
  Receive Date: 20251104
  Receipt Date: 20251104
  Transmission Date: 20260118
  Serious: Yes (Death)
  Sender: ABBVIE
  Company Number: MX-ABBVIE-6424089

PATIENT
  Age: 61 Year
  Sex: Male
  Weight: 105 kg

DRUGS (1)
  1. VENCLEXTA [Suspect]
     Active Substance: VENETOCLAX
     Indication: Chronic lymphocytic leukaemia
     Dosage: FORM STRENGTH: 100 MG?VENCLEXTA 100 MG X 120
     Route: 048
     Dates: start: 20250807, end: 20250930

REACTIONS (6)
  - Chronic lymphocytic leukaemia [Fatal]
  - Asthenia [Unknown]
  - Fatigue [Not Recovered/Not Resolved]
  - Feeding disorder [Not Recovered/Not Resolved]
  - Gait inability [Not Recovered/Not Resolved]
  - Bedridden [Unknown]

NARRATIVE: CASE EVENT DATE: 20250801
